FAERS Safety Report 6946443-3 (Version None)
Quarter: 2010Q3

REPORT INFORMATION
  Report Type: 
  Country: None (occurrence: None)
  Receive Date: 20100827
  Receipt Date: 20090729
  Transmission Date: 20110219
  Serious: Yes (Hospitalization)
  Sender: FDA-Public Use
  Company Number: US-ABBOTT-09P-163-0588117-00

PATIENT
  Sex: Male

DRUGS (9)
  1. NIASPAN [Suspect]
     Indication: PRODUCT USED FOR UNKNOWN INDICATION
     Route: 048
     Dates: start: 20070101
  2. NIASPAN [Suspect]
     Route: 048
     Dates: end: 20090601
  3. NIASPAN [Suspect]
     Route: 048
     Dates: start: 20090601, end: 20090701
  4. NIASPAN [Suspect]
     Route: 048
     Dates: start: 20090701, end: 20090729
  5. PLAVIX [Concomitant]
     Indication: PRODUCT USED FOR UNKNOWN INDICATION
  6. ASPIRIN [Concomitant]
     Indication: PRODUCT USED FOR UNKNOWN INDICATION
  7. SIMVASTATIN [Concomitant]
     Indication: PRODUCT USED FOR UNKNOWN INDICATION
     Dates: end: 20090729
  8. BENAZEPRIL HYDROCHLORIDE [Concomitant]
     Indication: PRODUCT USED FOR UNKNOWN INDICATION
  9. METOPROLOL [Concomitant]
     Indication: PRODUCT USED FOR UNKNOWN INDICATION
     Dates: end: 20090729

REACTIONS (5)
  - ASTHENIA [None]
  - DIZZINESS [None]
  - HEPATIC ENZYME INCREASED [None]
  - HIGH DENSITY LIPOPROTEIN DECREASED [None]
  - VOMITING [None]
